FAERS Safety Report 24011121 (Version 1)
Quarter: 2024Q2

REPORT INFORMATION
  Report Type: Spontaneous
  Country: EC (occurrence: EC)
  Receive Date: 20240625
  Receipt Date: 20240625
  Transmission Date: 20240716
  Serious: Yes (Hospitalization)
  Sender: FDA-Public Use
  Company Number: EC-FreseniusKabi-FK202409838

PATIENT
  Age: 61 Year
  Sex: Female

DRUGS (2)
  1. CARBOPLATIN [Suspect]
     Active Substance: CARBOPLATIN
     Indication: Cervix carcinoma stage IV
     Dosage: FORM OF ADMIN: INFUSION
  2. PACLITAXEL [Suspect]
     Active Substance: PACLITAXEL
     Indication: Cervix carcinoma stage IV
     Dosage: OPPRESSIVE CHEST PAIN AT REST, RATED 8/ 10 ON THE VISUAL ANALOG SCALE (VAS), RADIATING TO THE NECK A

REACTIONS (1)
  - Stress cardiomyopathy [Recovering/Resolving]
